FAERS Safety Report 15593170 (Version 2)
Quarter: 2018Q4

REPORT INFORMATION
  Report Type: Spontaneous
  Country: TR (occurrence: TR)
  Receive Date: 20181106
  Receipt Date: 20181115
  Transmission Date: 20190205
  Serious: No
  Sender: FDA-Public Use
  Company Number: TR-SA-2018SA302399

PATIENT
  Age: 69 Year
  Sex: Female

DRUGS (6)
  1. UROMISIN [Concomitant]
     Indication: URINARY TRACT INFECTION
     Dosage: 1 DF, UNK
     Route: 048
     Dates: start: 20181010
  2. TAMPROST [Suspect]
     Active Substance: TAMSULOSIN HYDROCHLORIDE
     Indication: POLLAKIURIA
  3. UROMISIN [Concomitant]
     Indication: NEPHROLITHIASIS
  4. UROMISIN [Concomitant]
     Indication: POLLAKIURIA
  5. TAMPROST [Suspect]
     Active Substance: TAMSULOSIN HYDROCHLORIDE
     Indication: NEPHROLITHIASIS
  6. TAMPROST [Suspect]
     Active Substance: TAMSULOSIN HYDROCHLORIDE
     Indication: URINARY TRACT INFECTION
     Dosage: 0.4 MG, BID 2 X 1 (0.8 MG)
     Route: 048
     Dates: start: 20181010

REACTIONS (3)
  - Condition aggravated [Not Recovered/Not Resolved]
  - Pollakiuria [Not Recovered/Not Resolved]
  - Off label use [Unknown]

NARRATIVE: CASE EVENT DATE: 20181010
